FAERS Safety Report 8364341-8 (Version None)
Quarter: 2012Q2

REPORT INFORMATION
  Report Type: 
  Country: None (occurrence: None)
  Receive Date: 20120516
  Receipt Date: 20120508
  Transmission Date: 20120825
  Serious: Yes (Hospitalization)
  Sender: FDA-Public Use
  Company Number: TN-ROXANE LABORATORIES, INC.-2012-RO-01201RO

PATIENT
  Age: 45 Year
  Sex: Female

DRUGS (3)
  1. NAPROXEN [Suspect]
     Dosage: 1100 MG
     Dates: start: 20100901, end: 20101020
  2. NAPROXEN [Suspect]
     Indication: ARTHRALGIA
     Dosage: 550 MG
     Dates: start: 20000101, end: 20100901
  3. NOMEGESTROL [Suspect]
     Indication: CONTRACEPTION
     Dates: start: 20100501, end: 20100907

REACTIONS (1)
  - LEUKOCYTOCLASTIC VASCULITIS [None]
